FAERS Safety Report 4320723-2 (Version None)
Quarter: 2004Q1

REPORT INFORMATION
  Report Type: 
  Country: None (occurrence: None)
  Receive Date: 20040315
  Receipt Date: 20040203
  Transmission Date: 20041129
  Serious: No
  Sender: FDA-Public Use
  Company Number: 2004197260US

PATIENT
  Age: 60 Year
  Sex: Female
  Weight: 59 kg

DRUGS (3)
  1. BEXTRA [Suspect]
     Indication: PAIN
     Dosage: 10 MG, QD, ORAL
     Route: 048
     Dates: start: 20031201, end: 20040128
  2. KLONOPIN [Concomitant]
  3. SINEQUAN [Concomitant]

REACTIONS (6)
  - CONTUSION [None]
  - DRUG INEFFECTIVE [None]
  - FATIGUE [None]
  - FLUID RETENTION [None]
  - SKIN SWELLING [None]
  - SWELLING [None]
